FAERS Safety Report 6834171-4 (Version None)
Quarter: 2010Q3

REPORT INFORMATION
  Report Type: 
  Country: None (occurrence: None)
  Receive Date: 20100712
  Receipt Date: 20070706
  Transmission Date: 20110219
  Serious: No
  Sender: FDA-Public Use
  Company Number: US-PFIZER INC-2007023441

PATIENT
  Age: 73 Year
  Sex: Female
  Weight: 44.45 kg

DRUGS (7)
  1. CHANTIX [Suspect]
     Indication: SMOKING CESSATION THERAPY
     Dates: start: 20070312
  2. LIPITOR [Concomitant]
     Indication: BLOOD CHOLESTEROL INCREASED
  3. SYNTHROID [Concomitant]
  4. EVISTA [Concomitant]
  5. NORVASC [Concomitant]
  6. TENORMIN [Concomitant]
  7. AXID [Concomitant]

REACTIONS (2)
  - DECREASED APPETITE [None]
  - NAUSEA [None]
